FAERS Safety Report 9442408 (Version 1)
Quarter: 2013Q3

REPORT INFORMATION
  Report Type: Spontaneous
  Country: US (occurrence: US)
  Receive Date: 20130806
  Receipt Date: 20130806
  Transmission Date: 20140515
  Serious: No
  Sender: FDA-Public Use
  Company Number: US-GLAXOSMITHKLINE-A1020805A

PATIENT
  Age: 64 Year
  Sex: Female

DRUGS (26)
  1. ADVAIR [Suspect]
     Indication: CHRONIC OBSTRUCTIVE PULMONARY DISEASE
     Dosage: 2PUFF TWICE PER DAY
     Route: 055
     Dates: start: 20111214, end: 201208
  2. THEODUR [Concomitant]
  3. VENTOLIN HFA [Concomitant]
  4. OXYGEN [Concomitant]
  5. ATENOLOL [Concomitant]
  6. LISINOPRIL [Concomitant]
  7. NEXIUM [Concomitant]
  8. ASPIRIN [Concomitant]
  9. ALEVE [Concomitant]
  10. ZOCOR [Concomitant]
  11. CALCIUM [Concomitant]
  12. CITALOPRAM [Concomitant]
  13. UNSPECIFIED MEDICATION [Concomitant]
  14. CLARITIN [Concomitant]
  15. LEVOFLOXACIN [Concomitant]
  16. PREDNISONE [Concomitant]
  17. BUDESONIDE [Concomitant]
  18. HYDROCODONE [Concomitant]
  19. FISH OIL [Concomitant]
  20. NAPROXEN [Concomitant]
  21. PHENERGAN [Concomitant]
  22. FLEXERIL [Concomitant]
  23. AMBIEN [Concomitant]
  24. RANITIDINE [Concomitant]
  25. STOOL SOFTENERS [Concomitant]
  26. NITROGLYCERIN [Concomitant]

REACTIONS (13)
  - Tongue ulceration [Recovering/Resolving]
  - Stomatitis [Recovering/Resolving]
  - Lip ulceration [Recovering/Resolving]
  - Vision blurred [Unknown]
  - Cataract [Unknown]
  - Gingival disorder [Unknown]
  - Tongue injury [Unknown]
  - Biopsy tongue [Unknown]
  - Glossodynia [Unknown]
  - Tooth fracture [Unknown]
  - Oral pain [Unknown]
  - Aphthous stomatitis [Unknown]
  - Drug administration error [Unknown]
